FAERS Safety Report 5988703-9 (Version None)
Quarter: 2008Q4

REPORT INFORMATION
  Report Type: 
  Country: None (occurrence: None)
  Receive Date: 20081210
  Receipt Date: 20081202
  Transmission Date: 20090506
  Serious: Yes (Hospitalization, Other)
  Sender: FDA-Public Use
  Company Number: PHEH2008US09479

PATIENT
  Sex: Female
  Weight: 61.224 kg

DRUGS (5)
  1. EXJADE [Suspect]
     Indication: CHELATION THERAPY
     Dosage: 1250 MG, QD
     Route: 046
     Dates: start: 20080915, end: 20081020
  2. EXJADE [Suspect]
     Indication: TRANSFUSION
  3. TAMOXIFEN [Concomitant]
     Indication: BREAST CANCER
     Dosage: 20 MG, QD
     Route: 048
  4. XANAX [Concomitant]
     Indication: ANXIETY
     Dosage: 0.5 MG, PRN
  5. FLONASE [Concomitant]
     Indication: NASAL CONGESTION
     Dosage: UNK
     Route: 045

REACTIONS (15)
  - ALANINE AMINOTRANSFERASE INCREASED [None]
  - ANOREXIA [None]
  - ASPARTATE AMINOTRANSFERASE INCREASED [None]
  - BILIRUBIN CONJUGATED INCREASED [None]
  - BLOOD ALBUMIN DECREASED [None]
  - BLOOD ALKALINE PHOSPHATASE INCREASED [None]
  - BLOOD BILIRUBIN INCREASED [None]
  - CHROMATURIA [None]
  - FATIGUE [None]
  - INFECTION [None]
  - JAUNDICE [None]
  - LETHARGY [None]
  - LIVER DISORDER [None]
  - OCULAR ICTERUS [None]
  - PYREXIA [None]
